FAERS Safety Report 7118481-1 (Version None)
Quarter: 2010Q4

REPORT INFORMATION
  Report Type: 
  Country: None (occurrence: None)
  Receive Date: 20101123
  Receipt Date: 20101111
  Transmission Date: 20110411
  Serious: Yes (Death, Hospitalization)
  Sender: FDA-Public Use
  Company Number: KE-SANOFI-AVENTIS-2010SA066242

PATIENT
  Sex: Male
  Weight: 52 kg

DRUGS (6)
  1. RIFAMPICIN [Suspect]
     Indication: PULMONARY TUBERCULOSIS
     Route: 048
     Dates: start: 20100917, end: 20101025
  2. ISONIAZID [Suspect]
     Indication: PULMONARY TUBERCULOSIS
     Route: 048
     Dates: start: 20100917, end: 20101025
  3. ETHAMBUTOL HYDROCHLORIDE [Suspect]
     Indication: PULMONARY TUBERCULOSIS
     Route: 048
     Dates: start: 20100917, end: 20101025
  4. PYRAZINAMIDE [Suspect]
     Indication: PULMONARY TUBERCULOSIS
     Route: 048
     Dates: start: 20100917, end: 20101025
  5. MOXIFLOXACIN [Suspect]
     Indication: PULMONARY TUBERCULOSIS
     Route: 048
     Dates: start: 20100917, end: 20101025
  6. PYRIDOXINE HCL [Concomitant]
     Indication: PROPHYLAXIS
     Route: 048
     Dates: start: 20100917, end: 20101025

REACTIONS (5)
  - JAUNDICE [None]
  - MENINGITIS [None]
  - PYREXIA [None]
  - TACHYCARDIA [None]
  - VOMITING [None]
